FAERS Safety Report 16716001 (Version 4)
Quarter: 2019Q3

REPORT INFORMATION
  Report Type: Spontaneous
  Country: US (occurrence: US)
  Receive Date: 20190819
  Receipt Date: 20190918
  Transmission Date: 20191005
  Serious: No
  Sender: FDA-Public Use
  Company Number: US-PFIZER INC-2019354552

PATIENT
  Age: 51 Year
  Sex: Female

DRUGS (3)
  1. LYRICA [Suspect]
     Active Substance: PREGABALIN
     Indication: PAIN
     Dosage: 2 CAPSULE EVERY 6 HOURS
  2. LYRICA [Suspect]
     Active Substance: PREGABALIN
     Dosage: 100 MG, 4X/DAY (1CAPSULE EVERY 6 HOURS, BY MOUTH)
     Route: 048
  3. LYRICA [Suspect]
     Active Substance: PREGABALIN
     Indication: NERVE INJURY
     Dosage: UNK, 1X/DAY

REACTIONS (4)
  - Somnolence [Unknown]
  - Procedural pain [Unknown]
  - Drug ineffective [Unknown]
  - Intentional product use issue [Unknown]
